FAERS Safety Report 22394630 (Version 1)
Quarter: 2023Q2

REPORT INFORMATION
  Report Type: Report from Study
  Country: CA (occurrence: CA)
  Receive Date: 20230601
  Receipt Date: 20230601
  Transmission Date: 20230722
  Serious: Yes (Hospitalization)
  Sender: FDA-Public Use
  Company Number: CA-BAXALTA-2016BLT002252

PATIENT
  Sex: Male
  Weight: 11.5 kg

DRUGS (23)
  1. ADVATE [Suspect]
     Active Substance: ANTIHEMOPHILIC FACTOR, HUMAN RECOMBINANT
     Indication: Factor VIII deficiency
     Dosage: UNK
     Route: 042
     Dates: start: 20160329
  2. ADVATE [Suspect]
     Active Substance: ANTIHEMOPHILIC FACTOR, HUMAN RECOMBINANT
     Indication: Factor VIII deficiency
     Dosage: UNK
     Route: 042
     Dates: start: 20160329
  3. ADVATE [Suspect]
     Active Substance: ANTIHEMOPHILIC FACTOR, HUMAN RECOMBINANT
     Indication: Factor VIII deficiency
     Dosage: UNK
     Route: 042
     Dates: start: 20160329
  4. ADVATE [Suspect]
     Active Substance: ANTIHEMOPHILIC FACTOR, HUMAN RECOMBINANT
     Indication: Prophylaxis
     Dosage: 500 INTERNATIONAL UNIT, SINGLE
     Route: 042
     Dates: start: 20160329
  5. ADVATE [Suspect]
     Active Substance: ANTIHEMOPHILIC FACTOR, HUMAN RECOMBINANT
     Indication: Prophylaxis
     Dosage: 500 INTERNATIONAL UNIT, SINGLE
     Route: 042
     Dates: start: 20160329
  6. ADVATE [Suspect]
     Active Substance: ANTIHEMOPHILIC FACTOR, HUMAN RECOMBINANT
     Indication: Prophylaxis
     Dosage: 500 INTERNATIONAL UNIT, SINGLE
     Route: 042
     Dates: start: 20160329
  7. ADVATE [Suspect]
     Active Substance: ANTIHEMOPHILIC FACTOR, HUMAN RECOMBINANT
     Dosage: 1000 INTERNATIONAL UNIT, SINGLE
     Route: 042
     Dates: start: 20160404, end: 20160404
  8. ADVATE [Suspect]
     Active Substance: ANTIHEMOPHILIC FACTOR, HUMAN RECOMBINANT
     Dosage: 1000 INTERNATIONAL UNIT, SINGLE
     Route: 042
     Dates: start: 20160404, end: 20160404
  9. ADVATE [Suspect]
     Active Substance: ANTIHEMOPHILIC FACTOR, HUMAN RECOMBINANT
     Dosage: 1000 INTERNATIONAL UNIT, SINGLE
     Route: 042
     Dates: start: 20160404, end: 20160404
  10. ADVATE [Suspect]
     Active Substance: ANTIHEMOPHILIC FACTOR, HUMAN RECOMBINANT
     Dosage: 500 INTERNATIONAL UNIT, SINGLE
     Route: 042
     Dates: start: 20160404, end: 20160404
  11. ADVATE [Suspect]
     Active Substance: ANTIHEMOPHILIC FACTOR, HUMAN RECOMBINANT
     Dosage: 500 INTERNATIONAL UNIT, SINGLE
     Route: 042
     Dates: start: 20160404, end: 20160404
  12. ADVATE [Suspect]
     Active Substance: ANTIHEMOPHILIC FACTOR, HUMAN RECOMBINANT
     Dosage: 500 INTERNATIONAL UNIT, SINGLE
     Route: 042
     Dates: start: 20160404, end: 20160404
  13. ADVATE [Suspect]
     Active Substance: ANTIHEMOPHILIC FACTOR, HUMAN RECOMBINANT
     Dosage: 500 INTERNATIONAL UNIT, SINGLE
     Route: 042
     Dates: start: 20160406
  14. ADVATE [Suspect]
     Active Substance: ANTIHEMOPHILIC FACTOR, HUMAN RECOMBINANT
     Dosage: 500 INTERNATIONAL UNIT, SINGLE
     Route: 042
     Dates: start: 20160406
  15. ADVATE [Suspect]
     Active Substance: ANTIHEMOPHILIC FACTOR, HUMAN RECOMBINANT
     Dosage: 500 INTERNATIONAL UNIT, SINGLE
     Route: 042
     Dates: start: 20160406
  16. ADVATE [Suspect]
     Active Substance: ANTIHEMOPHILIC FACTOR, HUMAN RECOMBINANT
     Dosage: 500 INTERNATIONAL UNIT, SINGLE
     Route: 042
     Dates: start: 20160408
  17. ADVATE [Suspect]
     Active Substance: ANTIHEMOPHILIC FACTOR, HUMAN RECOMBINANT
     Dosage: 500 INTERNATIONAL UNIT, SINGLE
     Route: 042
     Dates: start: 20160408
  18. ADVATE [Suspect]
     Active Substance: ANTIHEMOPHILIC FACTOR, HUMAN RECOMBINANT
     Dosage: 500 INTERNATIONAL UNIT, SINGLE
     Route: 042
     Dates: start: 20160408
  19. MORPHINE [Concomitant]
     Active Substance: MORPHINE
     Indication: Pain
     Dosage: 1 MILLIGRAM
     Route: 065
     Dates: start: 20160404, end: 20160404
  20. POLYETHYLENE GLYCOL [Concomitant]
     Active Substance: POLYETHYLENE GLYCOL
     Indication: Constipation prophylaxis
     Dosage: 8.5 GRAM, PRN
     Route: 065
     Dates: start: 20160404, end: 20160404
  21. TRANEXAMIC ACID [Concomitant]
     Active Substance: TRANEXAMIC ACID
     Indication: Post procedural haemorrhage
     Dosage: 160 MILLIGRAM, SINGLE
     Route: 065
     Dates: start: 20160403, end: 20160403
  22. TRANEXAMIC ACID [Concomitant]
     Active Substance: TRANEXAMIC ACID
     Indication: Haemostasis
     Dosage: 110 MILLIGRAM, TID
     Route: 065
     Dates: start: 20160404, end: 20160404
  23. TRANEXAMIC ACID [Concomitant]
     Active Substance: TRANEXAMIC ACID
     Dosage: 250 MILLIGRAM, BID
     Route: 065
     Dates: start: 20160329

REACTIONS (1)
  - Post procedural haemorrhage [Recovered/Resolved]

NARRATIVE: CASE EVENT DATE: 20160403
